FAERS Safety Report 25756270 (Version 1)
Quarter: 2025Q3

REPORT INFORMATION
  Report Type: Spontaneous
  Country: US (occurrence: None)
  Receive Date: 20250902
  Receipt Date: 20250902
  Transmission Date: 20251020
  Serious: Yes (Disabling)
  Sender: FDA-CTU
  Company Number: None

PATIENT
  Age: 68 Year
  Sex: Male
  Weight: 71.1 kg

DRUGS (2)
  1. TAMSULOSIN [Suspect]
     Active Substance: TAMSULOSIN
     Indication: Benign prostatic hyperplasia
     Dates: start: 20230101, end: 20250830
  2. DEVICE [Concomitant]
     Active Substance: DEVICE

REACTIONS (4)
  - Arthritis [None]
  - Product dose omission issue [None]
  - Memory impairment [None]
  - Therapy cessation [None]

NARRATIVE: CASE EVENT DATE: 20250820
